FAERS Safety Report 6916495-5 (Version None)
Quarter: 2010Q3

REPORT INFORMATION
  Report Type: 
  Country: None (occurrence: None)
  Receive Date: 20100804
  Receipt Date: 20100722
  Transmission Date: 20110219
  Serious: Yes (Hospitalization)
  Sender: FDA-Public Use
  Company Number: 2010EU002990

PATIENT
  Age: 4 Year
  Sex: Male
  Weight: 15.3 kg

DRUGS (1)
  1. TACROLIMUS [Suspect]
     Indication: DERMATITIS ATOPIC
     Dosage: D, TOPICAL
     Route: 061
     Dates: start: 20090512

REACTIONS (3)
  - ALLERGY TEST [None]
  - EOSINOPHIL CATIONIC PROTEIN INCREASED [None]
  - GRANULOCYTE COUNT INCREASED [None]
